FAERS Safety Report 7276897-7 (Version None)
Quarter: 2011Q1

REPORT INFORMATION
  Report Type: 
  Country: None (occurrence: None)
  Receive Date: 20110207
  Receipt Date: 20110120
  Transmission Date: 20110831
  Serious: No
  Sender: FDA-Public Use
  Company Number: US-BIOGENIDEC-2010BI039326

PATIENT
  Age: 41 Year
  Sex: Female

DRUGS (1)
  1. TYSABRI [Suspect]
     Indication: MULTIPLE SCLEROSIS
     Route: 042
     Dates: start: 20101008

REACTIONS (5)
  - PNEUMONIA [None]
  - ABDOMINAL PAIN UPPER [None]
  - INFUSION RELATED REACTION [None]
  - BRONCHITIS [None]
  - NAUSEA [None]
